FAERS Safety Report 8365134-8 (Version None)
Quarter: 2012Q2

REPORT INFORMATION
  Report Type: 
  Country: None (occurrence: None)
  Receive Date: 20120516
  Receipt Date: 20120507
  Transmission Date: 20120825
  Serious: Yes (Other)
  Sender: FDA-Public Use
  Company Number: US-ASTRAZENECA-2012SE22584

PATIENT
  Sex: Male

DRUGS (2)
  1. MELATONIN [Suspect]
     Dates: start: 20120301
  2. SEROQUEL XR [Suspect]
     Indication: DEPRESSION
     Route: 048
     Dates: start: 20120312

REACTIONS (2)
  - PRURITUS [None]
  - RASH MACULO-PAPULAR [None]
